FAERS Safety Report 9594333 (Version 1)
Quarter: 2013Q3

REPORT INFORMATION
  Report Type: Spontaneous
  Country: US (occurrence: None)
  Receive Date: 20130927
  Receipt Date: 20130927
  Transmission Date: 20140515
  Serious: No
  Sender: FDA-Public Use
  Company Number: CABO-13003148

PATIENT
  Age: 43 Year
  Sex: Female

DRUGS (1)
  1. COMETRIQ [Suspect]
     Indication: CONNECTIVE TISSUE NEOPLASM
     Dosage: 140 MG, QD, ORAL
     Route: 048
     Dates: start: 20130807, end: 20130811

REACTIONS (3)
  - Tumour pain [None]
  - Fatigue [None]
  - Decreased appetite [None]
